FAERS Safety Report 7550059-8 (Version None)
Quarter: 2011Q2

REPORT INFORMATION
  Report Type: 
  Country: None (occurrence: None)
  Receive Date: 20110615
  Receipt Date: 20110609
  Transmission Date: 20111010
  Serious: Yes (Other)
  Sender: FDA-Public Use
  Company Number: CHPA2011US07778

PATIENT
  Age: 28 Year
  Sex: Female

DRUGS (2)
  1. NICOTINE [Suspect]
     Indication: SMOKING CESSATION THERAPY
     Dosage: 1 DF, QD
     Route: 062
     Dates: start: 20110529, end: 20110608
  2. NUVARING [Concomitant]
     Indication: CONTRACEPTION

REACTIONS (16)
  - DEHYDRATION [None]
  - TONGUE DISCOLOURATION [None]
  - APHAGIA [None]
  - ASTHENIA [None]
  - HEADACHE [None]
  - TOBACCO POISONING [None]
  - RHINORRHOEA [None]
  - BACK PAIN [None]
  - DIZZINESS [None]
  - FEELING OF BODY TEMPERATURE CHANGE [None]
  - NAUSEA [None]
  - SWELLING FACE [None]
  - DEPRESSED MOOD [None]
  - INSOMNIA [None]
  - TREMOR [None]
  - ANXIETY [None]
